FAERS Safety Report 8058504-9 (Version None)
Quarter: 2012Q1

REPORT INFORMATION
  Report Type: 
  Country: None (occurrence: None)
  Receive Date: 20120120
  Receipt Date: 20120117
  Transmission Date: 20120608
  Serious: Yes (Life-Threatening, Other)
  Sender: FDA-Public Use
  Company Number: US-PFIZER INC-2012013675

PATIENT
  Sex: Female
  Weight: 81.633 kg

DRUGS (5)
  1. PREMPRO [Suspect]
     Indication: MENOPAUSE
     Dosage: UNK
     Route: 048
  2. PREMPRO [Suspect]
     Indication: HOT FLUSH
  3. COLCHICINE [Concomitant]
     Indication: GOUT
     Dosage: 0.6 MG, 2X/DAY
  4. ULTRAM [Concomitant]
     Dosage: 50 MG, 3X/DAY
  5. IMITREX [Concomitant]
     Indication: MIGRAINE
     Dosage: UNK

REACTIONS (4)
  - HEADACHE [None]
  - SUICIDE ATTEMPT [None]
  - DISTURBANCE IN ATTENTION [None]
  - MEMORY IMPAIRMENT [None]
